FAERS Safety Report 22794935 (Version 10)
Quarter: 2025Q1

REPORT INFORMATION
  Report Type: Spontaneous
  Country: US (occurrence: US)
  Receive Date: 20230807
  Receipt Date: 20250220
  Transmission Date: 20250409
  Serious: No
  Sender: PFIZER
  Company Number: US-PFIZER INC-202300267836

PATIENT
  Age: 81 Year
  Sex: Female
  Weight: 45.351 kg

DRUGS (5)
  1. IBRANCE [Suspect]
     Active Substance: PALBOCICLIB
     Indication: Breast cancer metastatic
     Dates: start: 20230628, end: 2023
  2. IBRANCE [Suspect]
     Active Substance: PALBOCICLIB
     Route: 048
     Dates: start: 20230802
  3. IBRANCE [Suspect]
     Active Substance: PALBOCICLIB
  4. LETROZOLE [Concomitant]
     Active Substance: LETROZOLE
     Dates: start: 20230628
  5. KETOCONAZOLE [Concomitant]
     Active Substance: KETOCONAZOLE
     Indication: Seborrhoea

REACTIONS (10)
  - Neutrophil count decreased [Recovered/Resolved]
  - Red blood cell count decreased [Recovered/Resolved]
  - White blood cell count decreased [Recovered/Resolved]
  - Illness [Recovered/Resolved]
  - Immune system disorder [Unknown]
  - Full blood count decreased [Unknown]
  - Constipation [Unknown]
  - Cough [Unknown]
  - Neoplasm progression [Unknown]
  - Alopecia [Unknown]

NARRATIVE: CASE EVENT DATE: 20230101
